FAERS Safety Report 7369411-9 (Version None)
Quarter: 2011Q1

REPORT INFORMATION
  Report Type: 
  Country: None (occurrence: None)
  Receive Date: 20110323
  Receipt Date: 20110317
  Transmission Date: 20110831
  Serious: Yes (Death)
  Sender: FDA-Public Use
  Company Number: US-ROCHE-766678

PATIENT
  Age: 29 Year
  Sex: Female

DRUGS (3)
  1. ETHYLENE GLYCOL [Suspect]
     Dosage: ONGOING STATUS UNKNOWN AT THE TIME OF DEATH
     Route: 048
  2. CLONAZEPAM [Suspect]
     Dosage: ONGOING STATUS UNKNOWN AT THE TIME OF DEATH
     Route: 048
  3. ETHANOL [Suspect]
     Dosage: ONGOING STATUS UNKNOWN AT THE TIME OF DEATH
     Route: 048

REACTIONS (1)
  - TOXICITY TO VARIOUS AGENTS [None]
